FAERS Safety Report 4492401-0 (Version None)
Quarter: 2004Q4

REPORT INFORMATION
  Report Type: 
  Country: None (occurrence: None)
  Receive Date: 20041101
  Receipt Date: 20041101
  Transmission Date: 20050328
  Serious: Yes (Other)
  Sender: FDA-Public Use
  Company Number: None

PATIENT
  Sex: Male
  Weight: 78.0187 kg

DRUGS (2)
  1. VIGAMOX [Suspect]
     Indication: KERATITIS
     Dosage: ONE GTT Q 1 HR
     Dates: start: 20041005, end: 20041011
  2. OCUFLOX [Concomitant]

REACTIONS (2)
  - CONDITION AGGRAVATED [None]
  - KERATITIS FUNGAL [None]
